FAERS Safety Report 4829258-1 (Version None)
Quarter: 2005Q4

REPORT INFORMATION
  Report Type: 
  Country: None (occurrence: None)
  Receive Date: 20051116
  Receipt Date: 20051108
  Transmission Date: 20060501
  Serious: Yes (Other)
  Sender: FDA-Public Use
  Company Number: BR-GLAXOSMITHKLINE-A0565043B

PATIENT
  Sex: Male
  Weight: 2.6 kg

DRUGS (1)
  1. AEROLIN [Suspect]
     Dosage: 2MG FOUR TIMES PER DAY
     Dates: start: 20050629, end: 20050629

REACTIONS (3)
  - DRUG EXPOSURE DURING PREGNANCY [None]
  - INFANTILE APNOEIC ATTACK [None]
  - PREMATURE LABOUR [None]
